FAERS Safety Report 8364812-4 (Version None)
Quarter: 2012Q2

REPORT INFORMATION
  Report Type: 
  Country: None (occurrence: None)
  Receive Date: 20120516
  Receipt Date: 20120508
  Transmission Date: 20120825
  Serious: Yes (Other)
  Sender: FDA-Public Use
  Company Number: BR-BAYER-2012-045208

PATIENT
  Age: 30 Year
  Sex: Female

DRUGS (1)
  1. ESTRADIOL VALERATE/DIENOGEST [Suspect]
     Dosage: UNK
     Route: 048
     Dates: start: 20120112, end: 20120408

REACTIONS (5)
  - ALOPECIA [None]
  - MUSCLE FATIGUE [None]
  - MYALGIA [None]
  - DIZZINESS [None]
  - PAIN IN EXTREMITY [None]
